FAERS Safety Report 18906868 (Version 1)
Quarter: 2021Q1

REPORT INFORMATION
  Report Type: Spontaneous
  Country: US (occurrence: US)
  Receive Date: 20210218
  Receipt Date: 20210218
  Transmission Date: 20210420
  Serious: Yes (Hospitalization, Other)
  Sender: FDA-Public Use
  Company Number: US-SA-2021SA041944

PATIENT
  Age: 41 Year
  Sex: Female

DRUGS (11)
  1. FLAVOXATE [Concomitant]
     Active Substance: FLAVOXATE
  2. METHADONE [Interacting]
     Active Substance: METHADONE HYDROCHLORIDE
     Indication: BACK PAIN
     Dosage: 55 MG, Q4H
     Route: 048
  3. ZOPICLONE [Concomitant]
     Active Substance: ZOPICLONE
  4. METHADONE [Interacting]
     Active Substance: METHADONE HYDROCHLORIDE
     Dosage: 110 MG, Q3H
     Route: 048
  5. METHADONE [Interacting]
     Active Substance: METHADONE HYDROCHLORIDE
     Dosage: 110 MG, Q4H
     Route: 048
  6. HYDROCHLOROTHIAZIDE;TRIAMTERENE [Concomitant]
     Active Substance: HYDROCHLOROTHIAZIDE\TRIAMTERENE
  7. METHADONE [Interacting]
     Active Substance: METHADONE HYDROCHLORIDE
     Dosage: 130 MG, Q4H
     Route: 048
  8. ESTROGEN [Interacting]
     Active Substance: ESTROGENS
  9. GABAPENTIN. [Concomitant]
     Active Substance: GABAPENTIN
     Dosage: 600 MG, Q4H
  10. LIDOCAINE. [Suspect]
     Active Substance: LIDOCAINE
     Dosage: INFUSION
  11. FLUOXETINE [Interacting]
     Active Substance: FLUOXETINE HYDROCHLORIDE
     Dosage: 60 MG, QD

REACTIONS (10)
  - Torsade de pointes [Recovering/Resolving]
  - Syncope [Recovered/Resolved]
  - Ventricular tachycardia [Recovered/Resolved]
  - Fatigue [Recovered/Resolved]
  - Drug interaction [Recovered/Resolved]
  - Electrocardiogram QT prolonged [Recovering/Resolving]
  - Ventricular fibrillation [Recovered/Resolved]
  - Dizziness [Recovered/Resolved]
  - Cardiac arrest [Recovered/Resolved]
  - Hypokalaemia [Unknown]
